FAERS Safety Report 4278332-X (Version None)
Quarter: 2004Q1

REPORT INFORMATION
  Report Type: 
  Country: None (occurrence: None)
  Receive Date: 20040123
  Receipt Date: 20040119
  Transmission Date: 20041129
  Serious: Yes (Hospitalization)
  Sender: FDA-Public Use
  Company Number: PHRM2004FR00564

PATIENT
  Age: 80 Year
  Sex: Female

DRUGS (3)
  1. HYDERGINE [Suspect]
     Route: 048
     Dates: end: 20020227
  2. NEURONTIN [Suspect]
     Indication: SCIATICA
     Dosage: 400 MG, TID
     Route: 048
     Dates: end: 20020227
  3. FOSAMAX [Suspect]
     Route: 048
     Dates: end: 20020227

REACTIONS (12)
  - ASTHENIA [None]
  - CHLAMYDIAL INFECTION [None]
  - DIASTOLIC DYSFUNCTION [None]
  - DYSPNOEA [None]
  - DYSPNOEA AT REST [None]
  - DYSPNOEA EXERTIONAL [None]
  - HEADACHE [None]
  - HYPERTROPHIC CARDIOMYOPATHY [None]
  - INFLAMMATION [None]
  - INTERSTITIAL LUNG DISEASE [None]
  - PULMONARY EMBOLISM [None]
  - PULMONARY FIBROSIS [None]
